FAERS Safety Report 7257657-X (Version None)
Quarter: 2011Q1

REPORT INFORMATION
  Report Type: 
  Country: None (occurrence: None)
  Receive Date: 20110129
  Receipt Date: 20100504
  Transmission Date: 20110831
  Serious: No
  Sender: FDA-Public Use
  Company Number: US-ABBOTT-10P-163-0642273-00

PATIENT
  Age: 40 Year
  Sex: Female

DRUGS (2)
  1. HUMIRA [Suspect]
     Indication: CROHN'S DISEASE
     Dates: start: 20100401, end: 20100401
  2. HUMIRA [Suspect]
     Dates: start: 20100415, end: 20100415

REACTIONS (4)
  - NASOPHARYNGITIS [None]
  - INFLUENZA LIKE ILLNESS [None]
  - SPUTUM DISCOLOURED [None]
  - APHONIA [None]
